FAERS Safety Report 11253337 (Version 1)
Quarter: 2015Q3

REPORT INFORMATION
  Report Type: Spontaneous
  Country: US (occurrence: US)
  Receive Date: 20150709
  Receipt Date: 20150709
  Transmission Date: 20151125
  Serious: No
  Sender: FDA-Public Use
  Company Number: US-TEVA-506836USA

PATIENT
  Age: 94 Year
  Sex: Female

DRUGS (1)
  1. LEVOFLOXACIN TABLETS, 250 MG, 500 MG AND 750 MG [Suspect]
     Active Substance: LEVOFLOXACIN
     Indication: URINARY TRACT INFECTION
     Dates: start: 20140825

REACTIONS (6)
  - Urticaria [Unknown]
  - Malaise [Unknown]
  - Asthenia [Unknown]
  - Swelling face [Unknown]
  - Ocular hyperaemia [Unknown]
  - Hallucination [Unknown]

NARRATIVE: CASE EVENT DATE: 20140828
